FAERS Safety Report 17418585 (Version 1)
Quarter: 2020Q1

REPORT INFORMATION
  Report Type: Report from Study
  Country: None (occurrence: TR)
  Receive Date: 20200214
  Receipt Date: 20200214
  Transmission Date: 20200409
  Serious: Yes (Death)
  Sender: FDA-Public Use
  Company Number: TR-ABBVIE-18K-161-2336547-00

PATIENT
  Age: 65 Year
  Sex: Male
  Weight: 65 kg

DRUGS (6)
  1. DUODOPA [Suspect]
     Active Substance: CARBIDOPA\LEVODOPA
     Indication: PARKINSON^S DISEASE
     Dosage: MORNING DOSE: 4.00 ML??CONTINUOUS DOSE :1. 80 ML??EXTRA DOSE :0.10 ML
     Route: 050
     Dates: start: 20180413
  2. VASOSERC [Concomitant]
     Indication: ORTHOSTATIC HYPOTENSION
     Route: 048
     Dates: start: 2013
  3. VASOSERC [Concomitant]
     Route: 048
  4. KINZY [Concomitant]
     Indication: INCONTINENCE
     Route: 048
     Dates: start: 2018
  5. LANSOR [Concomitant]
     Active Substance: LANSOPRAZOLE
     Indication: PROPHYLAXIS
     Route: 048
     Dates: start: 20180413
  6. MELATONINA [Concomitant]
     Indication: SLEEP DISORDER
     Route: 048
     Dates: start: 201801

REACTIONS (2)
  - Dizziness [Not Recovered/Not Resolved]
  - Death [Fatal]

NARRATIVE: CASE EVENT DATE: 20180426
